FAERS Safety Report 7058104-3 (Version None)
Quarter: 2010Q4

REPORT INFORMATION
  Report Type: 
  Country: None (occurrence: None)
  Receive Date: 20101022
  Receipt Date: 20101013
  Transmission Date: 20110411
  Serious: Yes (Hospitalization)
  Sender: FDA-Public Use
  Company Number: JP-JNJFOC-20101005521

PATIENT
  Age: 65 Year
  Sex: Female

DRUGS (1)
  1. FINIBAX [Suspect]
     Indication: CELLULITIS
     Route: 041

REACTIONS (1)
  - PANCYTOPENIA [None]
